FAERS Safety Report 5964621-7 (Version None)
Quarter: 2008Q4

REPORT INFORMATION
  Report Type: 
  Country: None (occurrence: None)
  Receive Date: 20081124
  Receipt Date: 20081124
  Transmission Date: 20090506
  Serious: No
  Sender: FDA-Public Use
  Company Number: None

PATIENT
  Sex: Female

DRUGS (1)
  1. BUDEPRION SR 200 MG [Suspect]
     Dosage: ONE BID PO
     Route: 048
     Dates: start: 20081006, end: 20081107

REACTIONS (2)
  - AFFECT LABILITY [None]
  - AGITATION [None]
